FAERS Safety Report 4421902-6 (Version None)
Quarter: 2004Q3

REPORT INFORMATION
  Report Type: 
  Country: None (occurrence: None)
  Receive Date: 20040806
  Receipt Date: 20040719
  Transmission Date: 20050211
  Serious: Yes (Hospitalization)
  Sender: FDA-Public Use
  Company Number: EWC040740033

PATIENT
  Age: 72 Year
  Sex: Female

DRUGS (6)
  1. TERIPARATIDE [Suspect]
     Indication: OSTEOPOROSIS
     Dosage: 20 UG/1 DAY
     Dates: start: 20040501
  2. PRESSURAL (INDAPAMIDE) [Concomitant]
  3. DIOSMIN [Concomitant]
  4. VENORUTON (TROXERUTIN) [Concomitant]
  5. ASPIRIN [Concomitant]
  6. VITAMIN D [Concomitant]

REACTIONS (4)
  - CORNEAL ULCER [None]
  - KERATITIS BACTERIAL [None]
  - PULSE ABNORMAL [None]
  - STAPHYLOCOCCAL INFECTION [None]
